FAERS Safety Report 9335406 (Version 1)
Quarter: 2013Q2

REPORT INFORMATION
  Report Type: Spontaneous
  Country: JP (occurrence: JP)
  Receive Date: 20130605
  Receipt Date: 20130605
  Transmission Date: 20140414
  Serious: Yes (Hospitalization)
  Sender: FDA-Public Use
  Company Number: JP-CUBIST PHARMACEUTICALS, INC.-2013CBST000441

PATIENT
  Sex: 0

DRUGS (3)
  1. CUBICIN [Suspect]
     Indication: ENDOCARDITIS
     Dosage: 6 MG, THRICE WEEKLY
     Route: 041
     Dates: start: 20130430, end: 20130527
  2. CUBICIN [Suspect]
     Indication: STAPHYLOCOCCAL SEPSIS
  3. VANCOMYCIN [Concomitant]
     Indication: ENDOCARDITIS
     Dosage: UNK UNK, UNK
     Route: 065

REACTIONS (1)
  - Pancytopenia [Not Recovered/Not Resolved]
